FAERS Safety Report 5645227-6 (Version None)
Quarter: 2008Q1

REPORT INFORMATION
  Report Type: 
  Country: None (occurrence: None)
  Receive Date: 20080229
  Receipt Date: 20080221
  Transmission Date: 20080703
  Serious: Yes (Hospitalization)
  Sender: FDA-Public Use
  Company Number: US-ABBOTT-08P-163-0439369-00

PATIENT
  Sex: Female
  Weight: 54.48 kg

DRUGS (6)
  1. SYNTHROID [Suspect]
     Indication: HYPOTHYROIDISM
     Route: 048
     Dates: start: 19700101, end: 20070901
  2. SYNTHROID [Suspect]
     Route: 048
     Dates: start: 20070901, end: 20071201
  3. SYNTHROID [Suspect]
     Route: 048
     Dates: start: 20071201, end: 20080101
  4. SYNTHROID [Suspect]
     Route: 048
     Dates: start: 20080201
  5. MAGNESIUM [Concomitant]
     Indication: DRUG USE FOR UNKNOWN INDICATION
     Route: 048
  6. FIBER CHOICE [Concomitant]
     Indication: DRUG USE FOR UNKNOWN INDICATION
     Route: 048

REACTIONS (3)
  - CHEST DISCOMFORT [None]
  - PALPITATIONS [None]
  - THYROID FUNCTION TEST ABNORMAL [None]
